FAERS Safety Report 20607086 (Version 2)
Quarter: 2022Q2

REPORT INFORMATION
  Report Type: Spontaneous
  Country: CA (occurrence: CA)
  Receive Date: 20220317
  Receipt Date: 20220415
  Transmission Date: 20220721
  Serious: Yes (Hospitalization)
  Sender: FDA-Public Use
  Company Number: CA-PFIZER INC-202200341804

PATIENT
  Age: 57 Year
  Sex: Male

DRUGS (3)
  1. BRAFTOVI [Suspect]
     Active Substance: ENCORAFENIB
     Indication: Metastatic malignant melanoma
     Dosage: UNK
  2. BRAFTOVI [Suspect]
     Active Substance: ENCORAFENIB
     Dosage: 300 MG
     Dates: start: 20220309
  3. MEKTOVI [Concomitant]
     Active Substance: BINIMETINIB
     Dosage: UNK
     Dates: start: 20220309

REACTIONS (2)
  - Blindness [Unknown]
  - Motor dysfunction [Unknown]
